FAERS Safety Report 24756701 (Version 2)
Quarter: 2025Q1

REPORT INFORMATION
  Report Type: Spontaneous
  Country: US (occurrence: US)
  Receive Date: 20241220
  Receipt Date: 20250110
  Transmission Date: 20250408
  Serious: No
  Sender: SANOFI AVENTIS
  Company Number: US-SA-2024SA374921

PATIENT
  Sex: Male
  Weight: 122.45 kg

DRUGS (4)
  1. DUPIXENT [Suspect]
     Active Substance: DUPILUMAB
     Indication: Dermatitis atopic
     Dosage: 300 MG, QOW
     Route: 058
  2. BRIMONIDINE TARTRATE;TIMOLOL [Concomitant]
  3. PREVACID [Concomitant]
     Active Substance: LANSOPRAZOLE
  4. LOSARTAN POTASSIUM [Concomitant]
     Active Substance: LOSARTAN POTASSIUM

REACTIONS (2)
  - Dry skin [Unknown]
  - Pruritus [Unknown]
